FAERS Safety Report 4997118-1 (Version None)
Quarter: 2006Q2

REPORT INFORMATION
  Report Type: 
  Country: None (occurrence: None)
  Receive Date: 20060508
  Receipt Date: 20060508
  Transmission Date: 20061013
  Serious: Yes (Other)
  Sender: FDA-Public Use
  Company Number: None

PATIENT
  Age: 51 Year
  Sex: Female

DRUGS (1)
  1. POLYETHYLENE BI 3350 PWD 527 GL AFFORDABLE PHARM [Suspect]
     Indication: CONSTIPATION
     Dosage: MIX ONE CAPFUL (17 GRAMS/1 HEAPING TABLESPOONFUL) IN 8 OUNCES WATER AND DRINK EVERY MORNING
     Route: 048

REACTIONS (2)
  - DYSGEUSIA [None]
  - PHARMACEUTICAL PRODUCT COMPLAINT [None]
